FAERS Safety Report 25461028 (Version 1)
Quarter: 2025Q2

REPORT INFORMATION
  Report Type: Spontaneous
  Country: US (occurrence: US)
  Receive Date: 20250620
  Receipt Date: 20250620
  Transmission Date: 20250716
  Serious: No
  Sender: MALLINCKRODT
  Company Number: US-MALLINCKRODT-MNK202503235

PATIENT
  Sex: Female

DRUGS (10)
  1. CORTICOTROPIN [Suspect]
     Active Substance: CORTICOTROPIN
     Indication: Systemic lupus erythematosus
     Dosage: UNKNOWN
     Route: 030
     Dates: start: 20241205
  2. BENLYSTA [Concomitant]
     Active Substance: BELIMUMAB
  3. CLOBETASOL [Concomitant]
     Active Substance: CLOBETASOL
  4. FOLIC ACID [Concomitant]
     Active Substance: FOLIC ACID
  5. FOLIC ACID [Concomitant]
     Active Substance: FOLIC ACID
  6. LEFLUNOMIDE [Concomitant]
     Active Substance: LEFLUNOMIDE
  7. LISINOPRIL [Concomitant]
     Active Substance: LISINOPRIL
  8. LISINOPRIL [Concomitant]
     Active Substance: LISINOPRIL
  9. LORATADINE [Concomitant]
     Active Substance: LORATADINE
  10. NITROGLYCERIN [Concomitant]
     Active Substance: NITROGLYCERIN

REACTIONS (2)
  - Discomfort [Unknown]
  - Drug ineffective [Unknown]
